FAERS Safety Report 15848876 (Version 1)
Quarter: 2019Q1

REPORT INFORMATION
  Report Type: Spontaneous
  Country: KR (occurrence: KR)
  Receive Date: 20190121
  Receipt Date: 20190121
  Transmission Date: 20190417
  Serious: Yes (Death, Hospitalization, Other)
  Sender: FDA-Public Use
  Company Number: KR-PFIZER INC-2018503066

PATIENT
  Age: 8 Decade
  Sex: Male

DRUGS (1)
  1. SUTENE [Suspect]
     Active Substance: SUNITINIB MALATE
     Indication: RENAL CELL CARCINOMA
     Dosage: 50 MG, 1X/DAY
     Route: 048
     Dates: start: 201704

REACTIONS (6)
  - Neutrophil count decreased [Recovered/Resolved]
  - Speech disorder [Unknown]
  - Overdose [Unknown]
  - Skin discolouration [Recovered/Resolved]
  - Dyspnoea [Fatal]
  - Pneumonia [Unknown]

NARRATIVE: CASE EVENT DATE: 20181105
